FAERS Safety Report 4549474-6 (Version None)
Quarter: 2005Q1

REPORT INFORMATION
  Report Type: 
  Country: None (occurrence: None)
  Receive Date: 20050110
  Receipt Date: 20050110
  Transmission Date: 20050727
  Serious: Yes (Hospitalization, Disabling)
  Sender: FDA-Public Use
  Company Number: None

PATIENT
  Age: 50 Year
  Sex: Male

DRUGS (8)
  1. COUMADIN [Suspect]
     Dates: start: 20041201, end: 20041210
  2. BALCOFEN [Concomitant]
  3. ATENOLOL [Concomitant]
  4. NEURONTIN [Concomitant]
  5. NEXIUM [Concomitant]
  6. ZOCOR [Concomitant]
  7. MOBIC [Concomitant]
  8. AMITRIPTYLINE [Concomitant]

REACTIONS (3)
  - FIBROSIS [None]
  - INTERNATIONAL NORMALISED RATIO INCREASED [None]
  - PRIAPISM [None]
